FAERS Safety Report 8303534-2 (Version None)
Quarter: 2012Q2

REPORT INFORMATION
  Report Type: 
  Country: None (occurrence: None)
  Receive Date: 20120423
  Receipt Date: 20120419
  Transmission Date: 20120825
  Serious: Yes (Other)
  Sender: FDA-Public Use
  Company Number: US-PFIZER INC-2012097471

PATIENT
  Sex: Female
  Weight: 70.295 kg

DRUGS (1)
  1. ADVIL PM [Suspect]
     Indication: SLEEP DISORDER
     Dosage: 200 MG, UNK
     Dates: start: 20120419

REACTIONS (2)
  - PHARYNGEAL OEDEMA [None]
  - DYSPNOEA [None]
